FAERS Safety Report 8799992 (Version 2)
Quarter: 2015Q3

REPORT INFORMATION
  Report Type: Report from Study
  Country: US (occurrence: US)
  Receive Date: 20120921
  Receipt Date: 20150701
  Transmission Date: 20151125
  Serious: Yes (Death)
  Sender: FDA-Public Use
  Company Number: US-ROCHE-1104509

PATIENT
  Sex: Female

DRUGS (16)
  1. HEPARIN [Concomitant]
     Active Substance: HEPARIN SODIUM
     Route: 065
  2. AVASTIN [Suspect]
     Active Substance: BEVACIZUMAB
     Route: 042
  3. AVASTIN [Suspect]
     Active Substance: BEVACIZUMAB
     Route: 042
  4. CARBOPLATIN. [Concomitant]
     Active Substance: CARBOPLATIN
     Dosage: 200MG IN 500CC DSW IV
     Route: 042
  5. AVASTIN [Suspect]
     Active Substance: BEVACIZUMAB
     Route: 042
  6. PROCRIT [Concomitant]
     Active Substance: ERYTHROPOIETIN
     Route: 042
  7. DECADRON [Concomitant]
     Active Substance: DEXAMETHASONE
     Route: 065
  8. ANZEMET [Concomitant]
     Active Substance: DOLASETRON MESYLATE
  9. TOPAMAX [Concomitant]
     Active Substance: TOPIRAMATE
     Route: 065
  10. AVASTIN [Suspect]
     Active Substance: BEVACIZUMAB
     Route: 042
  11. AVASTIN [Suspect]
     Active Substance: BEVACIZUMAB
     Route: 042
  12. DILANTIN [Concomitant]
     Active Substance: PHENYTOIN
  13. FRAGMIN [Concomitant]
     Active Substance: DALTEPARIN SODIUM
     Dosage: 2500 UNITS SQ Q DAY
     Route: 058
  14. AVASTIN [Suspect]
     Active Substance: BEVACIZUMAB
     Indication: BRAIN NEOPLASM MALIGNANT
     Route: 042
  15. CPT-11 [Concomitant]
     Active Substance: IRINOTECAN
     Dosage: 100MG IN 250CC IN DSW OVER 1 HOUR
     Route: 065
  16. MEGACE [Concomitant]
     Active Substance: MEGESTROL ACETATE

REACTIONS (14)
  - Catheter site pain [Unknown]
  - Abdominal pain [Unknown]
  - Upper respiratory tract infection [Recovered/Resolved]
  - Off label use [Unknown]
  - Cough [Unknown]
  - Flank pain [Unknown]
  - Anaemia [Unknown]
  - Lower respiratory tract infection [Unknown]
  - Partial seizures [Unknown]
  - Death [Fatal]
  - Muscular weakness [Unknown]
  - Localised infection [Unknown]
  - Thrombocytopenia [Unknown]
  - Disease progression [Unknown]
